FAERS Safety Report 24690461 (Version 2)
Quarter: 2025Q1

REPORT INFORMATION
  Report Type: Spontaneous
  Country: US (occurrence: US)
  Receive Date: 20241203
  Receipt Date: 20250108
  Transmission Date: 20250409
  Serious: No
  Sender: SANOFI AVENTIS
  Company Number: US-SA-2024SA351140

PATIENT
  Age: 71 Year
  Sex: Female

DRUGS (2)
  1. REZUROCK [Suspect]
     Active Substance: BELUMOSUDIL
     Indication: Plasma cell myeloma
     Dosage: 200 MG, QD
     Route: 048
     Dates: start: 20241128
  2. JAKAFI [Concomitant]
     Active Substance: RUXOLITINIB
     Dosage: 5 MG, BID

REACTIONS (5)
  - Meniscus injury [Unknown]
  - Soft tissue injury [Unknown]
  - Fall [Unknown]
  - Back pain [Unknown]
  - Product use in unapproved indication [Unknown]

NARRATIVE: CASE EVENT DATE: 20240101
